FAERS Safety Report 23315544 (Version 1)
Quarter: 2023Q4

REPORT INFORMATION
  Report Type: Spontaneous
  Country: US (occurrence: US)
  Receive Date: 20231219
  Receipt Date: 20231219
  Transmission Date: 20240109
  Serious: Yes (Other)
  Sender: FDA-Public Use
  Company Number: US-ORG100016242-2023000243

PATIENT
  Age: 31 Year
  Sex: Male

DRUGS (2)
  1. BUPIVACAINE [Suspect]
     Active Substance: BUPIVACAINE
     Indication: Anaesthesia
     Route: 050
  2. BUPIVACAINE\EPINEPHRINE [Suspect]
     Active Substance: BUPIVACAINE\EPINEPHRINE
     Indication: Anaesthesia
     Route: 050

REACTIONS (3)
  - Ventricular fibrillation [Recovered/Resolved with Sequelae]
  - Loss of consciousness [Unknown]
  - Labelled drug-drug interaction medication error [Unknown]
